FAERS Safety Report 16269628 (Version 1)
Quarter: 2019Q2

REPORT INFORMATION
  Report Type: Spontaneous
  Country: US (occurrence: US)
  Receive Date: 20190503
  Receipt Date: 20190503
  Transmission Date: 20190711
  Serious: Yes (Other)
  Sender: FDA-Public Use
  Company Number: US-MYLANLABS-2019M1041704

PATIENT
  Age: 62 Year
  Sex: Male

DRUGS (5)
  1. IVERMECTIN. [Concomitant]
     Active Substance: IVERMECTIN
     Indication: SOMATIC DELUSION
     Route: 065
  2. PERMETHRIN. [Suspect]
     Active Substance: PERMETHRIN
     Indication: SOMATIC DELUSION
     Route: 065
  3. ARMODAFINIL. [Suspect]
     Active Substance: ARMODAFINIL
     Indication: SOMNOLENCE
     Route: 065
  4. AMFETAMINE/DEXAMFETAMINE [Suspect]
     Active Substance: AMPHETAMINE SULFATE\DEXTROAMPHETAMINE
     Indication: ATTENTION DEFICIT/HYPERACTIVITY DISORDER
     Dosage: 3-FOLD GREATER THAN THE RECOMMENDED MAXIMUM DOSAGE OF 40 MG FOR TREATMENT OF ADHD
     Route: 065
  5. MALATHION. [Suspect]
     Active Substance: MALATHION
     Indication: SOMATIC DELUSION
     Route: 061

REACTIONS (3)
  - Somatic delusion [Recovered/Resolved]
  - Overdose [Recovered/Resolved]
  - Dermatitis contact [Recovered/Resolved]
